FAERS Safety Report 7833400-8 (Version None)
Quarter: 2011Q4

REPORT INFORMATION
  Report Type: 
  Country: None (occurrence: None)
  Receive Date: 20111020
  Receipt Date: 20111006
  Transmission Date: 20120403
  Serious: Yes (Death)
  Sender: FDA-Public Use
  Company Number: 2011-428

PATIENT
  Age: 57 Year
  Sex: Male

DRUGS (1)
  1. FAZACLO ODT [Suspect]
     Indication: SCHIZOPHRENIA
     Dosage: 200 MG, QD, ORAL
     Route: 048
     Dates: start: 20110415, end: 20110101

REACTIONS (1)
  - RENAL FAILURE [None]
